FAERS Safety Report 17551446 (Version 1)
Quarter: 2020Q1

REPORT INFORMATION
  Report Type: Spontaneous
  Country: US (occurrence: US)
  Receive Date: 20200317
  Receipt Date: 20200317
  Transmission Date: 20200409
  Serious: Yes (Disabling, Other)
  Sender: FDA-Public Use
  Company Number: None

PATIENT
  Age: 63 Year
  Sex: Female
  Weight: 58.5 kg

DRUGS (1)
  1. AMBIEN [Suspect]
     Active Substance: ZOLPIDEM TARTRATE
     Indication: INSOMNIA

REACTIONS (8)
  - Nightmare [None]
  - Blunted affect [None]
  - Speech disorder [None]
  - Limb immobilisation [None]
  - Memory impairment [None]
  - Fear [None]
  - Depression [None]
  - Victim of sexual abuse [None]

NARRATIVE: CASE EVENT DATE: 19991201
